FAERS Safety Report 8075822-9 (Version None)
Quarter: 2012Q1

REPORT INFORMATION
  Report Type: 
  Country: None (occurrence: None)
  Receive Date: 20120127
  Receipt Date: 20120118
  Transmission Date: 20120608
  Serious: Yes (Other)
  Sender: FDA-Public Use
  Company Number: TR-MPIJNJ-2012-00444

PATIENT

DRUGS (4)
  1. ROCEPHIN [Concomitant]
     Indication: ANTIBIOTIC THERAPY
     Dosage: 1 G, BID
     Dates: start: 20111225
  2. LASIX [Concomitant]
     Indication: DIURETIC THERAPY
     Dosage: UNK
     Route: 042
     Dates: start: 20111225
  3. LANTUS [Concomitant]
     Dosage: 20 IU, UNK
     Dates: start: 20111225
  4. VELCADE [Suspect]
     Indication: MULTIPLE MYELOMA
     Dosage: 1.3 MG/M2, UNK
     Route: 065
     Dates: start: 20120113, end: 20120117

REACTIONS (2)
  - EYELID OEDEMA [None]
  - EYE SWELLING [None]
